FAERS Safety Report 19820356 (Version 1)
Quarter: 2021Q3

REPORT INFORMATION
  Report Type: Spontaneous
  Country: US (occurrence: US)
  Receive Date: 20210910
  Receipt Date: 20210910
  Transmission Date: 20211014
  Serious: Yes (Life-Threatening, Disabling)
  Sender: FDA-Public Use
  Company Number: None

PATIENT
  Age: 51 Year
  Sex: Male
  Weight: 108 kg

DRUGS (19)
  1. ASPIRIN. [Concomitant]
     Active Substance: ASPIRIN
  2. VITAMIN D3 [Concomitant]
     Active Substance: CHOLECALCIFEROL
  3. METHYL FOLATE [Concomitant]
     Active Substance: LEVOMEFOLATE CALCIUM
  4. CIPROFLOXACIN. [Suspect]
     Active Substance: CIPROFLOXACIN
     Dosage: ?          QUANTITY:1 TABLET(S);?
     Route: 048
     Dates: start: 20201204, end: 20201204
  5. POTASSIUM [Concomitant]
     Active Substance: POTASSIUM
  6. HYDROXYUREA. [Concomitant]
     Active Substance: HYDROXYUREA
  7. D?MANNOSE [DIETARY SUPPLEMENT] [Concomitant]
     Active Substance: DIETARY SUPPLEMENT
  8. TRIPLE MAGNESIUM COMPLEX [Concomitant]
  9. NAC [Concomitant]
  10. COENZYME Q10 [Concomitant]
     Active Substance: DIETARY SUPPLEMENT\UBIDECARENONE
  11. MULTIVITAMIN W/O IRON [Concomitant]
  12. OSTEO BI?FLEX [Concomitant]
     Active Substance: CHONDROITIN SULFATE A\GLUCOSAMINE
  13. ALLOPURINOL. [Concomitant]
     Active Substance: ALLOPURINOL
  14. FIBER SUPPLEMENT [Concomitant]
     Active Substance: DIETARY SUPPLEMENT
  15. CHLORELLA/SPIRULINA [Concomitant]
  16. OMEPRAZOLE. [Concomitant]
     Active Substance: OMEPRAZOLE
  17. MITOQ [Concomitant]
  18. LISINOPRIL. [Concomitant]
     Active Substance: LISINOPRIL
  19. MILK THISTLE [Concomitant]
     Active Substance: DIETARY SUPPLEMENT\HERBALS\MILK THISTLE

REACTIONS (25)
  - Arthralgia [None]
  - Tachycardia [None]
  - Headache [None]
  - Insomnia [None]
  - Muscle atrophy [None]
  - Dry eye [None]
  - Pollakiuria [None]
  - Peripheral swelling [None]
  - Skin disorder [None]
  - Benign neoplasm of skin [None]
  - Anxiety [None]
  - Food allergy [None]
  - Weight decreased [None]
  - Platelet count increased [None]
  - Gait inability [None]
  - Ear pain [None]
  - Nightmare [None]
  - Paraesthesia [None]
  - Loss of libido [None]
  - Contusion [None]
  - Muscle twitching [None]
  - Vitreous floaters [None]
  - Urine abnormality [None]
  - Skin discolouration [None]
  - Chest pain [None]

NARRATIVE: CASE EVENT DATE: 20201204
